FAERS Safety Report 8219207-0 (Version None)
Quarter: 2012Q1

REPORT INFORMATION
  Report Type: 
  Country: None (occurrence: None)
  Receive Date: 20120319
  Receipt Date: 20120311
  Transmission Date: 20120608
  Serious: Yes (Other)
  Sender: FDA-Public Use
  Company Number: GR-JNJFOC-20120305919

PATIENT
  Age: 35 Year
  Sex: Male

DRUGS (3)
  1. FORTATHRIN [Concomitant]
  2. SIMPONI [Suspect]
     Indication: ANKYLOSING SPONDYLITIS
     Route: 058
     Dates: start: 20111201
  3. LYRICA [Concomitant]

REACTIONS (1)
  - SPEECH DISORDER [None]
